FAERS Safety Report 20257240 (Version 3)
Quarter: 2022Q1

REPORT INFORMATION
  Report Type: Report from Study
  Country: US (occurrence: US)
  Receive Date: 20211230
  Receipt Date: 20220201
  Transmission Date: 20220424
  Serious: Yes (Life-Threatening, Hospitalization)
  Sender: FDA-Public Use
  Company Number: US-EXELIXIS-CABO-21046754

PATIENT
  Age: 80 Year
  Sex: Female

DRUGS (2)
  1. CABOMETYX [Suspect]
     Active Substance: CABOZANTINIB S-MALATE
     Indication: Renal cancer
     Dosage: 60 MG, QD
     Route: 048
     Dates: start: 20211110, end: 20211202
  2. CABOMETYX [Suspect]
     Active Substance: CABOZANTINIB S-MALATE
     Dosage: 40 MG, QD
     Route: 048
     Dates: start: 202112

REACTIONS (11)
  - Terminal state [Unknown]
  - Hepatic failure [Unknown]
  - Renal failure [Unknown]
  - Paraesthesia [Unknown]
  - Thyroid function test abnormal [Unknown]
  - Blood potassium increased [Unknown]
  - Diarrhoea [Unknown]
  - Blood pressure increased [Unknown]
  - Platelet count decreased [Unknown]
  - Fatigue [Unknown]
  - Product dose omission issue [Unknown]

NARRATIVE: CASE EVENT DATE: 20211116
